FAERS Safety Report 19475695 (Version 1)
Quarter: 2021Q2

REPORT INFORMATION
  Report Type: Spontaneous
  Country: US (occurrence: US)
  Receive Date: 20210629
  Receipt Date: 20210629
  Transmission Date: 20210717
  Serious: Yes (Hospitalization, Other)
  Sender: FDA-Public Use
  Company Number: US-B.I. PHARMACEUTICALS,INC./RIDGEFIELD-2021-BI-111325

PATIENT
  Age: 74 Year
  Sex: Female

DRUGS (5)
  1. PRADAXA [Suspect]
     Active Substance: DABIGATRAN ETEXILATE MESYLATE
     Dates: start: 202102
  2. METOPROLOL. [Concomitant]
     Active Substance: METOPROLOL
     Indication: CARDIAC DISORDER
     Dosage: 25MG ONCE DAILY
     Dates: start: 2017
  3. FLECAINIDE [Concomitant]
     Active Substance: FLECAINIDE
     Indication: CARDIAC DISORDER
     Dosage: 50MG TWICE DAILY
     Dates: start: 2017
  4. PRADAXA [Suspect]
     Active Substance: DABIGATRAN ETEXILATE MESYLATE
     Indication: THROMBOSIS
     Dosage: 150MG TWICE A DAY
     Dates: start: 2017
  5. LOSARTAN AND HYDROCHLOROTHIAZIDE [Concomitant]
     Active Substance: HYDROCHLOROTHIAZIDE\LOSARTAN POTASSIUM
     Indication: FLUID RETENTION
     Dosage: 50/12.5MG ONCE DAILY
     Dates: start: 2017

REACTIONS (5)
  - Fall [Unknown]
  - Hip arthroplasty [Recovered/Resolved]
  - Dyspnoea [Unknown]
  - Thrombosis [Unknown]
  - Femur fracture [Unknown]

NARRATIVE: CASE EVENT DATE: 202101
